FAERS Safety Report 5676791-9 (Version None)
Quarter: 2008Q2

REPORT INFORMATION
  Report Type: 
  Country: None (occurrence: None)
  Receive Date: 20080311
  Receipt Date: 20080205
  Transmission Date: 20081010
  Serious: No
  Sender: FDA-Public Use
  Company Number: 002#2#2008-00047

PATIENT
  Age: 71 Year
  Sex: Male

DRUGS (1)
  1. NEUPRO [Suspect]
     Indication: DRUG USE FOR UNKNOWN INDICATION
     Dosage: 6MG/24H, 1 IN 1 D, TRANSDERMAL
     Route: 062

REACTIONS (2)
  - APPLICATION SITE DISCOLOURATION [None]
  - APPLICATION SITE REACTION [None]
